FAERS Safety Report 4783191-2 (Version None)
Quarter: 2005Q3

REPORT INFORMATION
  Report Type: 
  Country: None (occurrence: None)
  Receive Date: 20050929
  Receipt Date: 20050829
  Transmission Date: 20060218
  Serious: Yes (Other)
  Sender: FDA-Public Use
  Company Number: FR-GLAXOSMITHKLINE-B0393001A

PATIENT
  Age: 69 Year
  Sex: Male

DRUGS (8)
  1. SERETIDE DISKUS [Suspect]
     Indication: ASTHMA
     Route: 055
     Dates: start: 20000101
  2. VENTOLIN [Suspect]
     Indication: ASTHMA
     Route: 055
     Dates: start: 19860101
  3. BECOTIDE [Suspect]
     Indication: ASTHMA
     Route: 055
     Dates: start: 19860101, end: 19920101
  4. SEREVENT [Suspect]
     Indication: ASTHMA
     Route: 055
     Dates: start: 19920101, end: 20000101
  5. FLIXOTIDE [Suspect]
     Indication: ASTHMA
     Route: 055
     Dates: start: 19920101, end: 20000101
  6. PLAVIX [Concomitant]
     Dosage: 1UNIT PER DAY
     Dates: start: 20000101
  7. ELISOR [Concomitant]
     Dosage: 1UNIT PER DAY
  8. PARIET [Concomitant]
     Dosage: 1UNIT PER DAY
     Dates: start: 20050401

REACTIONS (2)
  - DYSPHONIA [None]
  - LARYNGEAL CANCER [None]
